FAERS Safety Report 13510317 (Version 1)
Quarter: 2017Q2

REPORT INFORMATION
  Report Type: Spontaneous
  Country: US (occurrence: US)
  Receive Date: 20170503
  Receipt Date: 20170503
  Transmission Date: 20170830
  Serious: Yes (Other)
  Sender: FDA-Public Use
  Company Number: US-SUPERNUS PHARMACEUTICALS, INC.-2017SUP00084

PATIENT
  Age: 43 Year
  Sex: Female
  Weight: 66.67 kg

DRUGS (9)
  1. TIROSINT [Concomitant]
     Active Substance: LEVOTHYROXINE SODIUM
     Dosage: 100 ?G, 2X/WEEK
  2. L-GLUTATHIONE [Concomitant]
     Active Substance: GLUTATHIONE
     Dosage: 250 MG, 2X/DAY
  3. N-ACETYL CYSTEINE [Concomitant]
     Dosage: 500 MG, 2X/DAY
  4. CALCIUM WITH MAGNESIUM LIQUID SOLUTION [Concomitant]
     Dosage: 1 TBSP, 2X/DAY
  5. TIROSINT [Concomitant]
     Active Substance: LEVOTHYROXINE SODIUM
     Dosage: 112 ?G, 5X/WEEK
  6. PHARMATON [Concomitant]
     Active Substance: MINERALS\VITAMINS
  7. TROKENDI XR [Suspect]
     Active Substance: TOPIRAMATE
     Dosage: 25 MG, 1X/DAY AT NIGHT
     Route: 048
     Dates: start: 20170410, end: 20170417
  8. TROKENDI XR [Suspect]
     Active Substance: TOPIRAMATE
     Indication: MIGRAINE WITHOUT AURA
     Dosage: 25 MG, 1X/DAY AT NIGHT (10-11PM)
     Route: 048
     Dates: start: 20170331, end: 20170408
  9. CALCITRIOL. [Concomitant]
     Active Substance: CALCITRIOL
     Dosage: 0.25 ?G, 2X/DAY

REACTIONS (14)
  - Thirst [Recovered/Resolved]
  - Dry mouth [Recovered/Resolved]
  - Back pain [Recovered/Resolved]
  - Confusional state [Recovered/Resolved]
  - Weight increased [Recovering/Resolving]
  - Electrolyte imbalance [Unknown]
  - Glucose tolerance impaired [Unknown]
  - Piloerection [Recovered/Resolved]
  - Pyrexia [Not Recovered/Not Resolved]
  - Hypohidrosis [Recovered/Resolved]
  - Hypertension [Unknown]
  - Blood cholesterol increased [Unknown]
  - Chills [Recovered/Resolved]
  - Muscular weakness [Recovered/Resolved]

NARRATIVE: CASE EVENT DATE: 20170331
